FAERS Safety Report 8495209-4 (Version None)
Quarter: 2012Q3

REPORT INFORMATION
  Report Type: 
  Country: None (occurrence: None)
  Receive Date: 20120709
  Receipt Date: 20120704
  Transmission Date: 20120928
  Serious: Yes (Death, Life-Threatening)
  Sender: FDA-Public Use
  Company Number: SE-ASTRAZENECA-2012SE45585

PATIENT
  Age: 63 Year
  Sex: Male

DRUGS (18)
  1. MOVIPREP [Concomitant]
  2. VOLUVEN [Concomitant]
     Dosage: 60 MG/ML
  3. NICOTINE [Concomitant]
     Dosage: 21 MG/24 TIMMAR
     Route: 062
  4. ABBOTICIN [Concomitant]
  5. FUROSEMIDE [Concomitant]
  6. MEROPENEM [Concomitant]
  7. ATROVENT [Concomitant]
     Dosage: 0.25 MG/ML
  8. CEFOTAXIM [Concomitant]
  9. DIGOXIN [Concomitant]
     Dosage: 0.25 MG/ML
  10. BRILINTA [Concomitant]
     Route: 048
  11. VENTOLIN [Concomitant]
     Dosage: 2 MG/ML
  12. ASPIRIN [Concomitant]
  13. NOVORAPID [Concomitant]
  14. CILAXORAL [Concomitant]
     Dosage: 7.5 MG/ML
     Route: 048
  15. PROPOFOL [Suspect]
     Route: 042
     Dates: start: 20120330, end: 20120403
  16. NEXIUM [Concomitant]
  17. CATAPRES [Concomitant]
  18. PRIMPERAN TAB [Concomitant]
     Dosage: 5 MG/ML

REACTIONS (2)
  - RHABDOMYOLYSIS [None]
  - TOXICITY TO VARIOUS AGENTS [None]
